FAERS Safety Report 8004572-X (Version None)
Quarter: 2011Q4

REPORT INFORMATION
  Report Type: 
  Country: None (occurrence: None)
  Receive Date: 20111220
  Receipt Date: 20111207
  Transmission Date: 20120403
  Serious: Yes (Other)
  Sender: FDA-Public Use
  Company Number: PI-06366

PATIENT
  Age: 12 Year
  Sex: Male

DRUGS (1)
  1. CHLORAPREP [Suspect]
     Indication: THERAPEUTIC SKIN CARE TOPICAL
     Dosage: ONCE, TOPICAL
     Route: 061
     Dates: start: 20110829

REACTIONS (2)
  - APPLICATION SITE REACTION [None]
  - ECZEMA WEEPING [None]
